FAERS Safety Report 21338553 (Version 2)
Quarter: 2022Q3

REPORT INFORMATION
  Report Type: Spontaneous
  Country: FR (occurrence: FR)
  Receive Date: 20220915
  Receipt Date: 20220928
  Transmission Date: 20221026
  Serious: Yes (Hospitalization)
  Sender: FDA-Public Use
  Company Number: FR-TEVA-2022-FR-2072819

PATIENT
  Sex: Male

DRUGS (5)
  1. ARIPIPRAZOLE [Interacting]
     Active Substance: ARIPIPRAZOLE
     Indication: Schizophrenia
     Dosage: 15 MILLIGRAM DAILY;
     Route: 065
  2. ARIPIPRAZOLE [Interacting]
     Active Substance: ARIPIPRAZOLE
     Dosage: 30 MILLIGRAM DAILY;
     Route: 065
  3. PALIPERIDONE [Interacting]
     Active Substance: PALIPERIDONE
     Indication: Schizophrenia
     Dosage: 150MG MONTHLY
     Route: 030
  4. PALIPERIDONE [Interacting]
     Active Substance: PALIPERIDONE
     Dosage: 75 MG
     Route: 030
  5. RISPERIDONE [Concomitant]
     Active Substance: RISPERIDONE
     Indication: Schizophrenia
     Dosage: 4 MILLIGRAM DAILY;
     Route: 065

REACTIONS (3)
  - Paradoxical drug reaction [Unknown]
  - Psychotic disorder [Unknown]
  - Drug interaction [Unknown]
